FAERS Safety Report 8724917 (Version 2)
Quarter: 2013Q2

REPORT INFORMATION
  Report Type: Spontaneous
  Country: US (occurrence: None)
  Receive Date: 20120423
  Receipt Date: 20121227
  Transmission Date: 20140414
  Serious: Yes (Hospitalization)
  Sender: FDA-Public Use
  Company Number: PHHY2010US46415

PATIENT
  Sex: Female
  Weight: 80.3 kg

DRUGS (1)
  1. EXJADE [Suspect]
     Indication: SICKLE CELL ANAEMIA
     Dosage: 1000 MG, DAILY, ORAL
     Route: 048
     Dates: start: 20100528, end: 20120315

REACTIONS (3)
  - SICKLE CELL ANAEMIA [None]
  - PAIN [None]
  - Sickle cell anaemia with crisis [None]
